FAERS Safety Report 26032742 (Version 1)
Quarter: 2025Q4

REPORT INFORMATION
  Report Type: Report from Study
  Country: EU (occurrence: EU)
  Receive Date: 20251112
  Receipt Date: 20251112
  Transmission Date: 20260118
  Serious: Yes (Death)
  Sender: ABBVIE
  Company Number: EU-ABBVIE-6544432

PATIENT
  Sex: Male

DRUGS (1)
  1. FOSCARBIDOPA\FOSLEVODOPA [Suspect]
     Active Substance: FOSCARBIDOPA\FOSLEVODOPA
     Indication: Parkinson^s disease
     Dosage: CRN: 0.15 ML/H; CR: 0.28 ML/H; CRH: 0.30 ML/H; ED: 0.25 ML
     Route: 058
     Dates: start: 20240812

REACTIONS (1)
  - Parkinson^s disease [Fatal]
